FAERS Safety Report 4368078-1 (Version None)
Quarter: 2004Q2

REPORT INFORMATION
  Report Type: 
  Country: None (occurrence: None)
  Receive Date: 20040527
  Receipt Date: 20040323
  Transmission Date: 20050107
  Serious: No
  Sender: FDA-Public Use
  Company Number: 205460

PATIENT
  Age: 47 Year
  Sex: Male
  Weight: 73 kg

DRUGS (3)
  1. RAPTIVA [Suspect]
     Dosage: SEE IMAGE
     Route: 058
     Dates: start: 20040120, end: 20040120
  2. RAPTIVA [Suspect]
     Dosage: SEE IMAGE
     Route: 058
     Dates: start: 20040101
  3. PLENDIL [Concomitant]

REACTIONS (1)
  - INFLUENZA LIKE ILLNESS [None]
